FAERS Safety Report 6257530-X (Version None)
Quarter: 2009Q3

REPORT INFORMATION
  Report Type: 
  Country: None (occurrence: None)
  Receive Date: 20090706
  Receipt Date: 20090701
  Transmission Date: 20100115
  Serious: Yes (Hospitalization)
  Sender: FDA-Public Use
  Company Number: FR-BRISTOL-MYERS SQUIBB COMPANY-14688766

PATIENT
  Age: 77 Year
  Sex: Female

DRUGS (5)
  1. COUMADIN [Suspect]
     Indication: PHLEBITIS
     Dates: start: 20090101, end: 20090202
  2. MONOALGIC [Concomitant]
     Dosage: MONOALGIC LP 100 MG
  3. AMLODIPINE [Concomitant]
  4. FLUOXETINE HCL [Concomitant]
  5. LEXOMIL [Concomitant]
     Dosage: LEXOMIL ROCHE 1 DF = 0.5 UNITS NOT SPECIFIED

REACTIONS (4)
  - ANAEMIA [None]
  - FALL [None]
  - INTERNATIONAL NORMALISED RATIO INCREASED [None]
  - WOUND HAEMORRHAGE [None]
